FAERS Safety Report 11391441 (Version 1)
Quarter: 2015Q3

REPORT INFORMATION
  Report Type: Spontaneous
  Country: US (occurrence: None)
  Receive Date: 20150814
  Receipt Date: 20150814
  Transmission Date: 20151125
  Serious: Yes (Death, Hospitalization, Other)
  Sender: FDA-Public Use
  Company Number: US-ZYDUS-008782

PATIENT
  Age: 65 Year
  Sex: Male

DRUGS (3)
  1. ASPIRIN. [Concomitant]
     Active Substance: ASPIRIN
  2. PRASUGREL (PRASUGREL) [Suspect]
     Active Substance: PRASUGREL
     Indication: PRODUCT USED FOR UNKNOWN INDICATION
  3. CLOPIDOGREL [Suspect]
     Active Substance: CLOPIDOGREL BISULFATE
     Indication: PRODUCT USED FOR UNKNOWN INDICATION

REACTIONS (14)
  - Systemic inflammatory response syndrome [None]
  - Coronary artery occlusion [None]
  - Contusion [None]
  - Dizziness [None]
  - Petechiae [None]
  - Off label use [None]
  - Diverticulum intestinal [None]
  - Pneumonia [None]
  - Confusional state [None]
  - Urinary tract infection enterococcal [None]
  - Disorientation [None]
  - Headache [None]
  - Sepsis [None]
  - Asthenia [None]
